FAERS Safety Report 5750172-1 (Version None)
Quarter: 2008Q2

REPORT INFORMATION
  Report Type: 
  Country: None (occurrence: None)
  Receive Date: 20080527
  Receipt Date: 20080515
  Transmission Date: 20081010
  Serious: Yes (Hospitalization, Other)
  Sender: FDA-Public Use
  Company Number: CA-ELI_LILLY_AND_COMPANY-CA200805003267

PATIENT
  Sex: Female

DRUGS (3)
  1. FORTEO [Suspect]
     Indication: OSTEOPOROSIS
     Dosage: 20 UG, DAILY (1/D)
     Route: 058
     Dates: start: 20080104
  2. LASIX [Concomitant]
  3. LOSEC I.V. [Concomitant]

REACTIONS (3)
  - ASTHMA [None]
  - MYOCARDIAL INFARCTION [None]
  - NASOPHARYNGITIS [None]
